FAERS Safety Report 5322969-3 (Version None)
Quarter: 2007Q1

REPORT INFORMATION
  Report Type: 
  Country: None (occurrence: None)
  Receive Date: 20070220
  Receipt Date: 20061117
  Transmission Date: 20070707
  Serious: No
  Sender: FDA-Public Use
  Company Number: TPA2006A02087

PATIENT
  Age: 47 Year
  Sex: Female
  Weight: 113.3993 kg

DRUGS (8)
  1. ROZEREM [Suspect]
     Indication: INSOMNIA
     Dosage: 8 MG, QHS, PER ORAL
     Route: 048
     Dates: start: 20061101, end: 20061116
  2. LORAZEPAM [Concomitant]
  3. FLUOXETINE [Concomitant]
  4. SYNTHROID [Concomitant]
  5. ESTRADIOL [Concomitant]
  6. HYDROCODONE (HYDROCODONE) [Concomitant]
  7. IBUPROFEN (IBUPROFEN) (800 MILLIGRAM) [Concomitant]
  8. NEXIUM [Concomitant]

REACTIONS (1)
  - DRUG INEFFECTIVE [None]
